FAERS Safety Report 19856475 (Version 1)
Quarter: 2021Q3

REPORT INFORMATION
  Report Type: Spontaneous
  Country: US (occurrence: US)
  Receive Date: 20210920
  Receipt Date: 20210920
  Transmission Date: 20211014
  Serious: Yes (Death, Other)
  Sender: FDA-Public Use
  Company Number: US-PURDUE-USA-2020-0284354

PATIENT
  Sex: Male

DRUGS (1)
  1. OXYFAST [Suspect]
     Active Substance: OXYCODONE
     Indication: PAIN
     Dosage: UNKNOWN
     Route: 048
     Dates: start: 1997, end: 20110505

REACTIONS (3)
  - Overdose [Unknown]
  - Arteriosclerosis [Fatal]
  - Drug dependence [Unknown]
